FAERS Safety Report 4397887-8 (Version None)
Quarter: 2004Q3

REPORT INFORMATION
  Report Type: 
  Country: None (occurrence: None)
  Receive Date: 20040714
  Receipt Date: 20040521
  Transmission Date: 20050211
  Serious: Yes (Death, Hospitalization, Other)
  Sender: FDA-Public Use
  Company Number: DE-BRISTOL-MYERS SQUIBB COMPANY-12594248

PATIENT
  Age: 75 Year
  Sex: Female
  Weight: 77 kg

DRUGS (2)
  1. TAXOL [Suspect]
     Indication: BREAST CANCER
     Dosage: THERAPY DATES: 07 TO 14-MAY-2004
     Route: 042
     Dates: start: 20040514, end: 20040514
  2. GEMZAR [Suspect]
     Indication: BREAST CANCER
     Dosage: THERAPY DATES: 07 TO 14-MAY-2004
     Route: 042
     Dates: start: 20040514, end: 20040514

REACTIONS (3)
  - MUCOSAL HAEMORRHAGE [None]
  - PANCYTOPENIA [None]
  - RENAL FAILURE ACUTE [None]
